FAERS Safety Report 24085377 (Version 1)
Quarter: 2024Q3

REPORT INFORMATION
  Report Type: Spontaneous
  Country: US (occurrence: None)
  Receive Date: 20240712
  Receipt Date: 20240712
  Transmission Date: 20241017
  Serious: Yes (Hospitalization, Other)
  Sender: Public
  Company Number: None

PATIENT
  Age: 33 Year
  Sex: Female
  Weight: 126.45 kg

DRUGS (1)
  1. PANTOPRAZOLE [Suspect]
     Active Substance: PANTOPRAZOLE
     Indication: Gastrooesophageal reflux disease
     Route: 048
     Dates: start: 20240703, end: 20240712

REACTIONS (9)
  - Asthenia [None]
  - Headache [None]
  - Migraine [None]
  - Oedema peripheral [None]
  - Nausea [None]
  - Skin swelling [None]
  - Erythema [None]
  - Fall [None]
  - Hypophagia [None]

NARRATIVE: CASE EVENT DATE: 20240705
